FAERS Safety Report 8560175-X (Version None)
Quarter: 2012Q3

REPORT INFORMATION
  Report Type: 
  Country: None (occurrence: None)
  Receive Date: 20120802
  Receipt Date: 20120725
  Transmission Date: 20120928
  Serious: Yes (Other)
  Sender: FDA-Public Use
  Company Number: US-SANOFI-AVENTIS-2012SA053043

PATIENT
  Age: 28 Year
  Sex: Female

DRUGS (2)
  1. AMBIEN [Suspect]
     Dates: start: 20120101
  2. AMBIEN [Suspect]
     Dates: start: 20120101

REACTIONS (4)
  - CONVULSION [None]
  - DRUG ABUSE [None]
  - PETIT MAL EPILEPSY [None]
  - DRUG DEPENDENCE [None]
